FAERS Safety Report 15615667 (Version 2)
Quarter: 2018Q4

REPORT INFORMATION
  Report Type: Spontaneous
  Country: US (occurrence: US)
  Receive Date: 20181114
  Receipt Date: 20181212
  Transmission Date: 20190205
  Serious: Yes (Hospitalization)
  Sender: FDA-Public Use
  Company Number: US-BIOGEN-2018BI00656949

PATIENT
  Age: 9 Year
  Sex: Female

DRUGS (7)
  1. CLONIDINE. [Concomitant]
     Active Substance: CLONIDINE
     Indication: PRODUCT USED FOR UNKNOWN INDICATION
     Route: 065
  2. SPINRAZA [Suspect]
     Active Substance: NUSINERSEN
     Dosage: LD: FIRST 3 LOADING DOSES Q14 DAYS; 4TH LOADING DOSE  Q30 DAYS. MD: ONCE EVERY 4 MONTHS.
     Route: 037
  3. PULMICORT TURBUHALER [Concomitant]
     Active Substance: BUDESONIDE
     Indication: PRODUCT USED FOR UNKNOWN INDICATION
     Dosage: NEBULIZER
     Route: 065
  4. ZANTAC [Concomitant]
     Active Substance: RANITIDINE HYDROCHLORIDE
     Indication: PRODUCT USED FOR UNKNOWN INDICATION
     Route: 065
  5. CARNITINE [Concomitant]
     Active Substance: CARNITINE
     Indication: PRODUCT USED FOR UNKNOWN INDICATION
     Route: 065
  6. SPINRAZA [Suspect]
     Active Substance: NUSINERSEN
     Indication: SPINAL MUSCULAR ATROPHY
     Dosage: LD: FIRST 3 LOADING DOSES Q14 DAYS; 4TH LOADING DOSE Q30 DAYS. MD: ONCE EVERY 4 MONTHS.
     Route: 037
     Dates: start: 20170516
  7. SPINRAZA [Suspect]
     Active Substance: NUSINERSEN
     Dosage: LD: FIRST 3 LOADING DOSES Q14 DAYS; 4TH LOADING DOSE Q30 DAYS. MD: ONCE EVERY 4 MONTHS.
     Route: 037

REACTIONS (3)
  - Infection susceptibility increased [Unknown]
  - Rhinovirus infection [Recovered/Resolved]
  - Respiratory tract infection [Recovered/Resolved]

NARRATIVE: CASE EVENT DATE: 20181004
